FAERS Safety Report 8270057-9 (Version None)
Quarter: 2012Q2

REPORT INFORMATION
  Report Type: 
  Country: None (occurrence: None)
  Receive Date: 20120405
  Receipt Date: 20120320
  Transmission Date: 20120825
  Serious: Yes (Hospitalization, Other)
  Sender: FDA-Public Use
  Company Number: 20120163

PATIENT
  Age: 50 Year
  Sex: Male

DRUGS (8)
  1. TYLENOL (CAPLET) [Concomitant]
  2. ZOFRAN [Concomitant]
  3. DIOVAN [Concomitant]
  4. TPN (TOTAL PARENTRAL NUTRITION) [Concomitant]
  5. NORVASC [Concomitant]
  6. GRAVOL TAB [Concomitant]
  7. MAXERAN [Concomitant]
  8. VENOFER [Suspect]
     Indication: PRODUCT USED FOR UNKNOWN INDICATION
     Dosage: 11 DOSES IN 3 WEEKS
     Dates: start: 20120201

REACTIONS (2)
  - DEVICE LEAKAGE [None]
  - DEVICE OCCLUSION [None]
